FAERS Safety Report 9445472 (Version 2)
Quarter: 2013Q3

REPORT INFORMATION
  Report Type: Spontaneous
  Country: US (occurrence: None)
  Receive Date: 20130801
  Receipt Date: 20130813
  Transmission Date: 20140515
  Serious: Yes (Other)
  Sender: FDA-Public Use
  Company Number: PIN-2013-00031

PATIENT
  Age: 72 Year
  Sex: Male
  Weight: 55.5 kg

DRUGS (10)
  1. PORFIMER SODIUM [Suspect]
     Indication: LUNG NEOPLASM MALIGNANT
     Dates: start: 20130514
  2. PORFIMER SODIUM [Suspect]
     Indication: TELANGIECTASIA
     Dates: start: 20130514
  3. PERCOCET [Concomitant]
  4. DUONEB [Concomitant]
  5. XANAX [Concomitant]
  6. ADVAIR DISKUS [Concomitant]
  7. FOLIC ACID [Concomitant]
  8. REMERON [Concomitant]
  9. THIAMINE [Concomitant]
  10. SPIRIVA [Concomitant]

REACTIONS (5)
  - Drug ineffective [None]
  - Product quality issue [None]
  - Off label use [None]
  - Product container issue [None]
  - Inappropriate schedule of drug administration [None]
